FAERS Safety Report 7791892-7 (Version None)
Quarter: 2011Q4

REPORT INFORMATION
  Report Type: 
  Country: None (occurrence: None)
  Receive Date: 20111003
  Receipt Date: 20110929
  Transmission Date: 20120403
  Serious: No
  Sender: FDA-Public Use
  Company Number: US-PFIZER INC-2011192398

PATIENT
  Sex: Female
  Weight: 45.351 kg

DRUGS (7)
  1. ALAVERT [Suspect]
     Indication: SNEEZING
     Dosage: 1 DF, 1X/DAY
     Route: 048
     Dates: start: 20110814, end: 20110818
  2. MULTI-VITAMINS [Concomitant]
     Dosage: UNK
  3. ACETYLSALICYLIC ACID [Concomitant]
     Dosage: UNK
  4. ALAVERT [Suspect]
     Indication: RHINORRHOEA
  5. ALAVERT [Suspect]
     Indication: NASAL DISCOMFORT
  6. LIPITOR [Concomitant]
     Dosage: UNK
  7. FISH OIL [Concomitant]
     Dosage: UNK

REACTIONS (1)
  - EPISTAXIS [None]
